FAERS Safety Report 21056732 (Version 1)
Quarter: 2022Q3

REPORT INFORMATION
  Report Type: Spontaneous
  Country: US (occurrence: US)
  Receive Date: 20220708
  Receipt Date: 20220708
  Transmission Date: 20221027
  Serious: No
  Sender: FDA-Public Use
  Company Number: US-ALLERGAN-2218044US

PATIENT
  Age: 50 Year
  Sex: Female
  Weight: 56.699 kg

DRUGS (3)
  1. QULIPTA [Suspect]
     Active Substance: ATOGEPANT
     Indication: Migraine
     Dosage: 15 MG
  2. QULIPTA [Suspect]
     Active Substance: ATOGEPANT
     Dosage: 30 MG, QD
     Dates: start: 202205, end: 20220602
  3. QULIPTA [Suspect]
     Active Substance: ATOGEPANT
     Dosage: 60 MG, QD

REACTIONS (4)
  - Gastrointestinal motility disorder [Unknown]
  - Abdominal distension [Unknown]
  - Constipation [Recovering/Resolving]
  - Fatigue [Not Recovered/Not Resolved]

NARRATIVE: CASE EVENT DATE: 20220501
